FAERS Safety Report 11189613 (Version 17)
Quarter: 2019Q1

REPORT INFORMATION
  Report Type: Spontaneous
  Country: US (occurrence: US)
  Receive Date: 20150615
  Receipt Date: 20190308
  Transmission Date: 20190417
  Serious: Yes (Hospitalization, Other)
  Sender: FDA-Public Use
  Company Number: US-DSJP-DSU-2015-101335

PATIENT

DRUGS (5)
  1. PAXIL [Concomitant]
     Active Substance: PAROXETINE HYDROCHLORIDE
     Indication: PRODUCT USED FOR UNKNOWN INDICATION
     Dosage: 10 MG, QD
     Route: 048
     Dates: start: 200110
  2. FOSAMAX [Concomitant]
     Active Substance: ALENDRONATE SODIUM
     Indication: OSTEOPOROSIS
     Dosage: 70 MG, ONCE EVERY 1 WK
     Route: 048
  3. BENICAR [Suspect]
     Active Substance: OLMESARTAN MEDOXOMIL
     Indication: HYPERTENSION
     Dosage: 40 MG, QD
     Route: 048
     Dates: start: 20060105
  4. BENICAR HCT [Suspect]
     Active Substance: HYDROCHLOROTHIAZIDE\OLMESARTAN MEDOXOMIL
     Indication: HYPERTENSION
     Dosage: 40/25 MG, QD
     Route: 048
     Dates: start: 20060105, end: 20090219
  5. VALTREX [Concomitant]
     Active Substance: VALACYCLOVIR HYDROCHLORIDE
     Indication: PRODUCT USED FOR UNKNOWN INDICATION
     Dosage: 500 MG, QD
     Route: 048

REACTIONS (13)
  - Ankle fracture [Unknown]
  - Deep vein thrombosis [Recovered/Resolved]
  - Parenteral nutrition [Unknown]
  - Coeliac disease [Recovered/Resolved]
  - Hiatus hernia [Unknown]
  - Acute kidney injury [Unknown]
  - Sprue-like enteropathy [Recovering/Resolving]
  - Reactive gastropathy [Unknown]
  - Osteoporosis [Unknown]
  - Hypotension [Unknown]
  - Oesophagitis [Recovering/Resolving]
  - Hip fracture [Unknown]
  - Colitis ulcerative [Recovered/Resolved]

NARRATIVE: CASE EVENT DATE: 20070901
